FAERS Safety Report 17988667 (Version 1)
Quarter: 2020Q3

REPORT INFORMATION
  Report Type: Other
  Country: FR (occurrence: FR)
  Receive Date: 20200707
  Receipt Date: 20200707
  Transmission Date: 20201103
  Serious: Yes (Hospitalization)
  Sender: FDA-Public Use
  Company Number: FR-COVIS PHARMA B.V.-2020COV00272

PATIENT
  Age: 54 Year
  Sex: Male
  Weight: 75 kg

DRUGS (15)
  1. AMLOR [Suspect]
     Active Substance: AMLODIPINE BESYLATE
  2. LEVOTHYROX [Suspect]
     Active Substance: LEVOTHYROXINE
  3. OMEPRAZOLE MAGNESIUM. [Suspect]
     Active Substance: OMEPRAZOLE MAGNESIUM
     Route: 048
  4. CORTANCYL [Suspect]
     Active Substance: PREDNISONE
     Indication: BASEDOW^S DISEASE
     Dosage: UNK MG, 1X/DAY
     Route: 048
     Dates: start: 2010, end: 202003
  5. KARDEGIC [Suspect]
     Active Substance: ASPIRIN DL-LYSINE
  6. BRILIQUE [Suspect]
     Active Substance: TICAGRELOR
     Route: 048
  7. VOLTARENE (DICLOFENAC SODIUM) [Suspect]
     Active Substance: DICLOFENAC SODIUM
  8. DOLIPRANE [Suspect]
     Active Substance: ACETAMINOPHEN
  9. TAHOR [Suspect]
     Active Substance: ATORVASTATIN CALCIUM
  10. COSIMPREL [Suspect]
     Active Substance: BISOPROLOL FUMARATE\PERINDOPRIL ARGININE
  11. METFORMIN [Suspect]
     Active Substance: METFORMIN HYDROCHLORIDE
  12. TOPALGIC LP [Suspect]
     Active Substance: TRAMADOL HYDROCHLORIDE
  13. PAROEX [Suspect]
     Active Substance: CHLORHEXIDINE GLUCONATE
  14. ACUPAN [Suspect]
     Active Substance: NEFOPAM HYDROCHLORIDE
  15. GAVISCON [Suspect]
     Active Substance: ALUMINUM HYDROXIDE\MAGNESIUM CARBONATE

REACTIONS (1)
  - Steroid diabetes [Recovered/Resolved]

NARRATIVE: CASE EVENT DATE: 2020
